FAERS Safety Report 12208561 (Version 3)
Quarter: 2016Q2

REPORT INFORMATION
  Report Type: Spontaneous
  Country: AU (occurrence: AU)
  Receive Date: 20160324
  Receipt Date: 20160425
  Transmission Date: 20160815
  Serious: Yes (Other)
  Sender: FDA-Public Use
  Company Number: PHHY2016AU036525

PATIENT
  Sex: Female

DRUGS (1)
  1. TOPIRAMATE SANDOZ [Suspect]
     Active Substance: TOPIRAMATE
     Indication: EPILEPSY
     Dosage: 100 MG, BID
     Route: 065
     Dates: start: 20160109, end: 20160124

REACTIONS (2)
  - Disease progression [Recovering/Resolving]
  - Seizure [Recovering/Resolving]
